FAERS Safety Report 8296290-8 (Version None)
Quarter: 2012Q2

REPORT INFORMATION
  Report Type: 
  Country: None (occurrence: None)
  Receive Date: 20120418
  Receipt Date: 20120412
  Transmission Date: 20120825
  Serious: Yes (Hospitalization)
  Sender: FDA-Public Use
  Company Number: US-GENZYME-POMP-1002004

PATIENT
  Sex: Female

DRUGS (11)
  1. LASIX [Concomitant]
     Indication: PRODUCT USED FOR UNKNOWN INDICATION
     Dosage: 7 MG, QD
  2. METHOTREXATE [Concomitant]
     Indication: IMMUNOMODULATORY THERAPY
     Dosage: 0.4 MG/KG, UNK
     Dates: start: 20110908, end: 20111005
  3. ASPIRIN [Concomitant]
     Indication: PRODUCT USED FOR UNKNOWN INDICATION
     Dosage: 40.5 MG, UNK
  4. MYOZYME [Suspect]
     Indication: GLYCOGEN STORAGE DISEASE TYPE II
     Dosage: 20 MG/KG, Q2W
     Route: 042
     Dates: start: 20110905
  5. BENADRYL [Concomitant]
     Indication: PREMEDICATION
     Dosage: UNK
  6. BACTRIM [Concomitant]
     Indication: PRODUCT USED FOR UNKNOWN INDICATION
     Dosage: 24 MG, 2X/W
  7. HYDROCORTISONE [Concomitant]
     Indication: PREMEDICATION
     Dosage: UNK
  8. RITUXIMAB [Concomitant]
     Indication: IMMUNOMODULATORY THERAPY
     Dosage: 375 MG, UNK
     Dates: start: 20110905, end: 20110926
  9. ENALAPRIL MALEATE [Concomitant]
     Indication: PRODUCT USED FOR UNKNOWN INDICATION
     Dosage: 24 MG, BID
  10. IRON [Concomitant]
     Indication: PRODUCT USED FOR UNKNOWN INDICATION
     Dosage: UNK
  11. ALBUTEROL [Concomitant]
     Indication: PRODUCT USED FOR UNKNOWN INDICATION
     Dosage: 2.5 MG, BID

REACTIONS (3)
  - URTICARIA [None]
  - AGITATION [None]
  - TACHYCARDIA [None]
